FAERS Safety Report 18660405 (Version 1)
Quarter: 2020Q4

REPORT INFORMATION
  Report Type: Spontaneous
  Country: US (occurrence: US)
  Receive Date: 20201223
  Receipt Date: 20201223
  Transmission Date: 20210114
  Serious: No
  Sender: FDA-Public Use
  Company Number: None

PATIENT
  Age: 27 Year
  Sex: Female
  Weight: 74.25 kg

DRUGS (1)
  1. XULANE [Suspect]
     Active Substance: ETHINYL ESTRADIOL\NORELGESTROMIN
     Indication: CONTRACEPTION
     Dosage: ?          OTHER STRENGTH:MCG/DAY;QUANTITY:1 PATCH(ES);OTHER FREQUENCY:WEEKLY;?
     Route: 062
     Dates: start: 20141201

REACTIONS (4)
  - Application site pruritus [None]
  - Application site perspiration [None]
  - Product quality issue [None]
  - Product storage error [None]

NARRATIVE: CASE EVENT DATE: 20201005
